FAERS Safety Report 6101072-9 (Version None)
Quarter: 2009Q1

REPORT INFORMATION
  Report Type: 
  Country: None (occurrence: None)
  Receive Date: 20090227
  Receipt Date: 20090217
  Transmission Date: 20090719
  Serious: Yes (Other)
  Sender: FDA-Public Use
  Company Number: 041505

PATIENT
  Age: 15 Year
  Sex: Male

DRUGS (2)
  1. CLARAVIS [Suspect]
     Indication: ACNE
     Dosage: 40 MG, QOD, ORAL;   80 MG, GOD, ORAL
     Route: 048
     Dates: start: 20081018, end: 20090217
  2. CLARAVIS [Suspect]
     Indication: ACNE
     Dosage: 40 MG, QOD, ORAL;   80 MG, GOD, ORAL
     Route: 048
     Dates: start: 20081018, end: 20090217

REACTIONS (2)
  - ROAD TRAFFIC ACCIDENT [None]
  - UPPER LIMB FRACTURE [None]
